FAERS Safety Report 15556771 (Version 3)
Quarter: 2020Q3

REPORT INFORMATION
  Report Type: Report from Study
  Country: BR (occurrence: BR)
  Receive Date: 20181026
  Receipt Date: 20190117
  Transmission Date: 20201104
  Serious: Yes (Hospitalization)
  Sender: FDA-Public Use
  Company Number: BR-JNJFOC-20181011091

PATIENT
  Age: 73 Year
  Sex: Male
  Weight: 55 kg

DRUGS (8)
  1. LEVOTHYROXINE. [Concomitant]
     Active Substance: LEVOTHYROXINE
     Indication: HYPOTHYROIDISM
     Route: 048
     Dates: start: 20180515
  2. PREDNISONE. [Concomitant]
     Active Substance: PREDNISONE
     Indication: RASH
     Route: 048
     Dates: start: 20180919, end: 20181004
  3. PYRIDIUM [Concomitant]
     Active Substance: PHENAZOPYRIDINE
     Indication: DYSURIA
     Route: 048
     Dates: start: 20180810
  4. PLACEBO [Suspect]
     Active Substance: UNSPECIFIED INGREDIENT
     Indication: PROSTATE CANCER
     Route: 048
     Dates: start: 20180611, end: 20181001
  5. DEXAMETHASONE. [Concomitant]
     Active Substance: DEXAMETHASONE
     Indication: RASH
     Route: 061
     Dates: start: 20180905, end: 20180918
  6. APALUTAMIDE [Suspect]
     Active Substance: APALUTAMIDE
     Indication: PROSTATE CANCER
     Route: 048
     Dates: start: 20180611, end: 20180904
  7. LOSARTAN. [Concomitant]
     Active Substance: LOSARTAN
     Indication: HYPERTENSION
     Route: 048
     Dates: start: 2013
  8. HYDROXYZINE [Concomitant]
     Active Substance: HYDROXYZINE HYDROCHLORIDE
     Indication: RASH
     Route: 048
     Dates: start: 20180905

REACTIONS (1)
  - Rash erythematous [Recovered/Resolved]

NARRATIVE: CASE EVENT DATE: 20181004
